FAERS Safety Report 17585257 (Version 1)
Quarter: 2020Q1

REPORT INFORMATION
  Report Type: Spontaneous
  Country: US (occurrence: US)
  Receive Date: 20200326
  Receipt Date: 20200326
  Transmission Date: 20200409
  Serious: Yes (Hospitalization)
  Sender: FDA-Public Use
  Company Number: None

PATIENT
  Age: 48 Year
  Sex: Male

DRUGS (16)
  1. ISOSORB MONO [Concomitant]
     Active Substance: ISOSORBIDE MONONITRATE
     Dates: start: 20190927
  2. BOSULIF [Suspect]
     Active Substance: BOSUTINIB MONOHYDRATE
     Indication: CHRONIC MYELOID LEUKAEMIA
     Route: 048
     Dates: start: 20190507
  3. CELECOXIB. [Concomitant]
     Active Substance: CELECOXIB
     Dates: start: 20191007
  4. DILTIAZEM. [Concomitant]
     Active Substance: DILTIAZEM
     Dates: start: 20191108
  5. LEVOTHYROXIN [Concomitant]
     Active Substance: LEVOTHYROXINE
     Dates: start: 20191202
  6. OLMESA MEDOX [Concomitant]
     Dates: start: 20190930
  7. XARELTO [Concomitant]
     Active Substance: RIVAROXABAN
     Dates: start: 20191122
  8. CARVEDILOL. [Concomitant]
     Active Substance: CARVEDILOL
     Dates: start: 20191202
  9. ATORVASTATIN [Concomitant]
     Active Substance: ATORVASTATIN
     Dates: start: 20191202
  10. CLONIDINE. [Concomitant]
     Active Substance: CLONIDINE
     Dates: start: 20190918
  11. FEROSUL [Concomitant]
     Active Substance: FERROUS SULFATE
     Dates: start: 20200103
  12. IPRATROPIUM/SOL [Concomitant]
     Dates: start: 20190130
  13. MONTELUKAST [Concomitant]
     Active Substance: MONTELUKAST SODIUM
     Dates: start: 20190927
  14. POT CHLORIDE [Concomitant]
     Active Substance: POTASSIUM CHLORIDE
     Dates: start: 20190825
  15. PREGABALIN. [Concomitant]
     Active Substance: PREGABALIN
     Dates: start: 20190930
  16. JARDIANCE [Concomitant]
     Active Substance: EMPAGLIFLOZIN
     Dates: start: 20191202

REACTIONS (1)
  - Pulmonary oedema [None]
